FAERS Safety Report 20773546 (Version 1)
Quarter: 2022Q2

REPORT INFORMATION
  Report Type: Spontaneous
  Country: US (occurrence: US)
  Receive Date: 20220502
  Receipt Date: 20220502
  Transmission Date: 20220721
  Serious: Yes (Other)
  Sender: FDA-Public Use
  Company Number: US-NOVARTISPH-NVSC2022US098022

PATIENT
  Sex: Female
  Weight: 67.7 kg

DRUGS (1)
  1. TISAGENLECLEUCEL [Suspect]
     Active Substance: TISAGENLECLEUCEL
     Indication: B-cell aplasia
     Dosage: UNK (1.2 X 10^8 CAR+ VIABLE T CELLS)
     Route: 065

REACTIONS (3)
  - Post-depletion B-cell recovery [Unknown]
  - Acute lymphocytic leukaemia recurrent [Unknown]
  - Weight increased [Unknown]
